FAERS Safety Report 15228778 (Version 2)
Quarter: 2019Q1

REPORT INFORMATION
  Report Type: Spontaneous
  Country: NL (occurrence: NL)
  Receive Date: 20180801
  Receipt Date: 20190305
  Transmission Date: 20190417
  Serious: Yes (Hospitalization)
  Sender: FDA-Public Use
  Company Number: PHHY2018NL061582

PATIENT

DRUGS (5)
  1. 5-FLUOROURACIL [Suspect]
     Active Substance: FLUOROURACIL
     Indication: COLORECTAL CANCER
     Dosage: UNK (ON 07 MAR 2018, RECEIVED 5-FLUOROURACIL.DATE OF MOST RECENT DOSE PRIOR TO AE ONSET:02 MAY 2018)
     Route: 065
     Dates: start: 20180307
  2. BEVACIZUMAB. [Suspect]
     Active Substance: BEVACIZUMAB
     Indication: COLORECTAL CANCER
     Dosage: UNK (ON 07 MAR 2018, RECEIVED BEVACIZUMAB.DATE OF MOST RECENT DOSE PRIOR TO AE ONSET: 02 MAY 2018)
     Route: 065
     Dates: start: 20180307
  3. LEUCOVORIN. [Suspect]
     Active Substance: LEUCOVORIN
     Indication: COLORECTAL CANCER
     Dosage: UNK (ON 07 MAR 2018, RECEIVED LEUCOVORIN.DATE OF MOST RECENT DOSE PRIOR TO AE ONSET: 02 MAY 2018)
     Route: 065
     Dates: start: 20180307
  4. OXALIPLATIN. [Suspect]
     Active Substance: OXALIPLATIN
     Indication: COLORECTAL CANCER
     Dosage: UNK (ON 07 MAR 2018, RECEIVED OXALIPLATIN.DATE OF MOST RECENT DOSE PRIOR TO AE ONSET: 02 MAY 2018)
     Route: 065
     Dates: start: 20180307
  5. IRINOTECAN [Suspect]
     Active Substance: IRINOTECAN
     Indication: COLORECTAL CANCER
     Dosage: UNK (ON 07 MAR 2018, RECEIVED IRINOTECAN.DATE OF MOST RECENT DOSE PRIOR TO AE ONSET: 02 MAY 2018)
     Route: 065
     Dates: start: 20180307

REACTIONS (2)
  - Pulmonary embolism [Recovering/Resolving]
  - Post procedural fever [Recovered/Resolved]

NARRATIVE: CASE EVENT DATE: 20180314
